FAERS Safety Report 7001735-7 (Version None)
Quarter: 2010Q3

REPORT INFORMATION
  Report Type: 
  Country: None (occurrence: None)
  Receive Date: 20100920
  Receipt Date: 20100917
  Transmission Date: 20110219
  Serious: Yes (Hospitalization)
  Sender: FDA-Public Use
  Company Number: GXKR2009DE02529

PATIENT
  Age: 76 Year
  Sex: Male
  Weight: 73 kg

DRUGS (8)
  1. SPIRONOLACTONE [Suspect]
     Indication: OEDEMA
     Dosage: 12.5 MG, QD
     Route: 048
     Dates: end: 20081117
  2. BISOPROLOL [Concomitant]
     Indication: HYPERTENSION
     Dosage: 2.5 MG, QD
  3. ACETYLSALICYLIC ACID [Concomitant]
     Indication: CARDIOVASCULAR EVENT PROPHYLAXIS
     Dosage: 100 MG, QD
     Route: 048
  4. ATACAND [Concomitant]
     Indication: HYPERTENSION
     Dosage: 8 MG, QD
     Route: 048
  5. DIGITOXIN [Concomitant]
  6. EZETIMIBE/SIMVASTATIN [Concomitant]
     Indication: HYPERCHOLESTEROLAEMIA
     Dosage: 10 MG EZETIMIBE, 20 MG SIMVASTATIN
     Route: 048
  7. OMEPRAZOLE [Concomitant]
     Indication: GASTROOESOPHAGEAL REFLUX PROPHYLAXIS
     Dosage: 20 MG, QD
     Route: 048
  8. TORASEMIDE [Concomitant]
     Indication: OEDEMA
     Dosage: 10 MG, QD
     Route: 048
     Dates: end: 20081117

REACTIONS (5)
  - BRADYCARDIA [None]
  - DYSPNOEA [None]
  - HYPERKALAEMIA [None]
  - LOSS OF CONSCIOUSNESS [None]
  - MALAISE [None]
